FAERS Safety Report 7631152-8 (Version None)
Quarter: 2011Q3

REPORT INFORMATION
  Report Type: 
  Country: None (occurrence: None)
  Receive Date: 20110725
  Receipt Date: 20110713
  Transmission Date: 20111222
  Serious: Yes (Other)
  Sender: FDA-Public Use
  Company Number: CA-JNJFOC-20110706491

PATIENT
  Sex: Female
  Weight: 66.2 kg

DRUGS (10)
  1. REMICADE [Suspect]
     Dosage: DOSE 17
     Route: 042
     Dates: start: 20110516
  2. REMICADE [Suspect]
     Indication: PRODUCT USED FOR UNKNOWN INDICATION
     Route: 042
  3. ESTRADOT PATCH [Concomitant]
  4. VENTOLIN HFA [Concomitant]
  5. FOLIC ACID [Concomitant]
  6. PREDNISONE [Concomitant]
     Route: 048
  7. METHOTREXATE [Concomitant]
  8. PREDNISONE [Concomitant]
     Route: 048
  9. MAVIK [Concomitant]
     Route: 048
  10. WELLBUTRIN [Concomitant]

REACTIONS (2)
  - RHEUMATOID ARTHRITIS [None]
  - CARTILAGE INJURY [None]
